FAERS Safety Report 19455683 (Version 1)
Quarter: 2021Q2

REPORT INFORMATION
  Report Type: Spontaneous
  Country: US (occurrence: US)
  Receive Date: 20210623
  Receipt Date: 20210623
  Transmission Date: 20210717
  Serious: Yes (Life-Threatening, Other)
  Sender: FDA-Public Use
  Company Number: None

PATIENT
  Age: 29 Year
  Sex: Female
  Weight: 56.25 kg

DRUGS (1)
  1. DEXTROAMPHET SACCHARAT, AMPHET ASPARTATE, DEXTROAMPHET SULFATE AND AMPHET SULFAT [Suspect]
     Active Substance: AMPHETAMINE ASPARTATE\AMPHETAMINE SULFATE\DEXTROAMPHETAMINE SACCHARATE\DEXTROAMPHETAMINE SULFATE
     Indication: ATTENTION DEFICIT HYPERACTIVITY DISORDER
     Dosage: ?          QUANTITY:1 CAPSULE(S);?
     Route: 048

REACTIONS (11)
  - Irritability [None]
  - Speech disorder [None]
  - Suicide attempt [None]
  - Affect lability [None]
  - Thinking abnormal [None]
  - Tic [None]
  - Feeling abnormal [None]
  - Depression [None]
  - Mental status changes [None]
  - Memory impairment [None]
  - Product substitution issue [None]

NARRATIVE: CASE EVENT DATE: 20210524
